FAERS Safety Report 18617328 (Version 5)
Quarter: 2021Q1

REPORT INFORMATION
  Report Type: Report from Study
  Country: CN (occurrence: CN)
  Receive Date: 20201215
  Receipt Date: 20210204
  Transmission Date: 20210419
  Serious: Yes (Hospitalization)
  Sender: FDA-Public Use
  Company Number: CN-ROCHE-2728644

PATIENT
  Age: 35 Year
  Sex: Male
  Weight: 87.5 kg

DRUGS (3)
  1. ENTECAVIR. [Concomitant]
     Active Substance: ENTECAVIR
     Dates: start: 20201015
  2. ATEZOLIZUMAB. [Suspect]
     Active Substance: ATEZOLIZUMAB
     Indication: HEPATOCELLULAR CARCINOMA
     Dosage: FIRST DOSE ON 13/NOV/2020.
     Route: 041
  3. XL184 [Suspect]
     Active Substance: CABOZANTINIB
     Indication: HEPATOCELLULAR CARCINOMA
     Dosage: FIRST DOSE ON 13/NOV/2020.
     Route: 048

REACTIONS (1)
  - Cytokine release syndrome [Recovering/Resolving]

NARRATIVE: CASE EVENT DATE: 20201128
